FAERS Safety Report 6543625-X (Version None)
Quarter: 2010Q1

REPORT INFORMATION
  Report Type: 
  Country: None (occurrence: None)
  Receive Date: 20100120
  Receipt Date: 20100113
  Transmission Date: 20100710
  Serious: Yes (Other)
  Sender: FDA-Public Use
  Company Number: GB-SP-2010-00356

PATIENT
  Sex: Male

DRUGS (1)
  1. IMMUCYST [Suspect]
     Indication: DRUG USE FOR UNKNOWN INDICATION
     Dosage: NOT REPORTED
     Route: 065

REACTIONS (1)
  - TUBERCULOSIS [None]
